FAERS Safety Report 8617694-7 (Version None)
Quarter: 2012Q3

REPORT INFORMATION
  Report Type: 
  Country: None (occurrence: None)
  Receive Date: 20120824
  Receipt Date: 20111219
  Transmission Date: 20120928
  Serious: No
  Sender: FDA-Public Use
  Company Number: US-ASTRAZENECA-2011SE77225

PATIENT
  Sex: Female
  Weight: 103.4 kg

DRUGS (7)
  1. SYMBICORT [Suspect]
     Dosage: TWO TIMES A DAY
     Route: 055
     Dates: start: 20101120
  2. VERAPAMIL [Concomitant]
     Indication: HYPERTENSION
     Route: 048
     Dates: start: 19961219
  3. ALEVE [Concomitant]
     Indication: PAIN
     Route: 048
     Dates: start: 20011201
  4. SYMBICORT [Suspect]
     Indication: BRONCHITIS CHRONIC
     Dosage: TWO TIMES A DAY
     Route: 055
     Dates: end: 20090101
  5. SIMVASTATIN [Concomitant]
     Indication: BLOOD CHOLESTEROL INCREASED
     Route: 048
     Dates: start: 19961219
  6. LEVOTHYROXINE SODIUM [Concomitant]
     Indication: HYPOTHYROIDISM
     Route: 048
     Dates: start: 19911201
  7. XANAX [Concomitant]
     Indication: PANIC ATTACK
     Route: 048
     Dates: start: 19961219

REACTIONS (4)
  - DYSPNOEA [None]
  - EYELID OEDEMA [None]
  - WEIGHT INCREASED [None]
  - OXYGEN SATURATION DECREASED [None]
